FAERS Safety Report 5870518-3 (Version None)
Quarter: 2008Q3

REPORT INFORMATION
  Report Type: 
  Country: None (occurrence: None)
  Receive Date: 20080829
  Receipt Date: 20080815
  Transmission Date: 20090109
  Serious: Yes (Other)
  Sender: FDA-Public Use
  Company Number: FABR-11249

PATIENT
  Age: 38 Year
  Sex: Male
  Weight: 93 kg

DRUGS (6)
  1. FABRAZYME [Suspect]
     Indication: FABRY'S DISEASE
     Dosage: 90 MG, Q2W, INTRAVENOUS
     Route: 042
     Dates: start: 20030729
  2. FABRAZYME [Suspect]
  3. LORAZEPAM [Concomitant]
  4. TOPAMAX [Concomitant]
  5. PROZAC [Concomitant]
  6. OXYCONTIN [Concomitant]

REACTIONS (4)
  - BLOOD IMMUNOGLOBULIN E INCREASED [None]
  - EYE PRURITUS [None]
  - EYELID OEDEMA [None]
  - INFUSION RELATED REACTION [None]
